FAERS Safety Report 13864658 (Version 1)
Quarter: 2017Q3

REPORT INFORMATION
  Report Type: Spontaneous
  Country: US (occurrence: US)
  Receive Date: 20170814
  Receipt Date: 20170814
  Transmission Date: 20171127
  Serious: Yes (Other)
  Sender: FDA-Public Use
  Company Number: US-THE MENTHOLATUM COMPANY-2024581

PATIENT
  Age: 35 Year
  Sex: Female

DRUGS (1)
  1. OXY FACE WASH MAXIMUM ACITON [Suspect]
     Active Substance: BENZOYL PEROXIDE
     Route: 061
     Dates: start: 20170803, end: 20170803

REACTIONS (2)
  - Pruritus [None]
  - Eye swelling [Unknown]

NARRATIVE: CASE EVENT DATE: 20170804
